FAERS Safety Report 16526533 (Version 9)
Quarter: 2020Q3

REPORT INFORMATION
  Report Type: Spontaneous
  Country: US (occurrence: US)
  Receive Date: 20190703
  Receipt Date: 20200706
  Transmission Date: 20201102
  Serious: Yes (Hospitalization, Other)
  Sender: FDA-Public Use
  Company Number: US-ACTELION-A-NJ2019-192464

PATIENT
  Age: 46 Year
  Sex: Female
  Weight: 76.64 kg

DRUGS (5)
  1. VELETRI [Suspect]
     Active Substance: EPOPROSTENOL
     Indication: PULMONARY HYPERTENSION
     Dosage: 38 NG/KG, PER MIN
     Route: 042
  2. VELETRI [Suspect]
     Active Substance: EPOPROSTENOL
     Dosage: 16 NG/KG, PER MIN
     Route: 042
  3. VELETRI [Suspect]
     Active Substance: EPOPROSTENOL
     Dosage: 10 NG/KG, PER MIN
     Route: 042
  4. VELETRI [Suspect]
     Active Substance: EPOPROSTENOL
     Dosage: 20 NG/KG, PER MIN
     Route: 042
  5. LETAIRIS [Concomitant]
     Active Substance: AMBRISENTAN

REACTIONS (24)
  - Nausea [Unknown]
  - Catheter site pruritus [Unknown]
  - Pain [Unknown]
  - Pain in jaw [Unknown]
  - Headache [Unknown]
  - Arthralgia [Unknown]
  - Cardiac failure [Unknown]
  - Myalgia [Unknown]
  - Dyspnoea exertional [Unknown]
  - Balance disorder [Unknown]
  - Back pain [Unknown]
  - Dyspnoea [Unknown]
  - Dizziness [Unknown]
  - Renal failure [Unknown]
  - Diarrhoea [Unknown]
  - Insomnia [Unknown]
  - Rash papular [Unknown]
  - Mood altered [Unknown]
  - Exercise tolerance decreased [Unknown]
  - Dysgeusia [Unknown]
  - Cough [Unknown]
  - Paracentesis [Unknown]
  - Application site rash [Unknown]
  - Gait disturbance [Unknown]

NARRATIVE: CASE EVENT DATE: 20190828
